FAERS Safety Report 4682680-9 (Version None)
Quarter: 2005Q2

REPORT INFORMATION
  Report Type: 
  Country: None (occurrence: None)
  Receive Date: 20050606
  Receipt Date: 20050527
  Transmission Date: 20051028
  Serious: Yes (Death)
  Sender: FDA-Public Use
  Company Number: FR-GLAXOSMITHKLINE-B0383070A

PATIENT
  Age: 77 Year
  Sex: Male

DRUGS (12)
  1. AUGMENTIN [Suspect]
     Route: 048
     Dates: start: 20050302, end: 20050312
  2. PREVISCAN [Suspect]
     Indication: ATRIAL FIBRILLATION
     Dosage: 10MG PER DAY
     Route: 048
     Dates: end: 20050312
  3. FLIXOTIDE [Concomitant]
     Dosage: 1PUFF TWICE PER DAY
     Route: 055
  4. CORDARONE [Concomitant]
     Indication: ATRIAL FIBRILLATION
     Dosage: 200MG PER DAY
     Route: 048
     Dates: end: 20050312
  5. DIGOXINE NATIVELLE [Concomitant]
     Indication: ATRIAL FIBRILLATION
     Dosage: .125MG PER DAY
     Route: 048
     Dates: end: 20050312
  6. IKOREL [Concomitant]
     Dosage: 20MG TWICE PER DAY
     Route: 048
  7. NITRODERM [Concomitant]
     Dosage: 10MG PER DAY
     Route: 065
  8. INSULIN [Concomitant]
     Dosage: 44IU IN THE MORNING
     Route: 065
  9. TENORMIN [Concomitant]
     Dosage: 50MG PER DAY
     Route: 048
  10. KARDEGIC [Concomitant]
     Dosage: 75MG PER DAY
     Route: 048
  11. STABLON [Concomitant]
     Dosage: 1TAB TWICE PER DAY
     Route: 048
  12. OGAST [Concomitant]
     Dosage: 1TAB PER DAY
     Route: 048

REACTIONS (15)
  - BRADYCARDIA [None]
  - DRUG INTERACTION [None]
  - DRUG LEVEL INCREASED [None]
  - DYSPNOEA [None]
  - GENERAL PHYSICAL HEALTH DETERIORATION [None]
  - HEART SOUNDS ABNORMAL [None]
  - HYPERHIDROSIS [None]
  - LUNG CREPITATION [None]
  - ORTHOPNOEA [None]
  - OXYGEN SATURATION DECREASED [None]
  - PULMONARY OEDEMA [None]
  - RED BLOOD CELL COUNT DECREASED [None]
  - RENAL FAILURE [None]
  - RESPIRATORY DISORDER [None]
  - SHOCK [None]
